FAERS Safety Report 23242441 (Version 2)
Quarter: 2024Q1

REPORT INFORMATION
  Report Type: Spontaneous
  Country: US (occurrence: US)
  Receive Date: 20231129
  Receipt Date: 20240113
  Transmission Date: 20240409
  Serious: No
  Sender: FDA-Public Use
  Company Number: US-ABBVIE-5518474

PATIENT

DRUGS (1)
  1. ORILISSA [Suspect]
     Active Substance: ELAGOLIX SODIUM
     Indication: Product used for unknown indication
     Route: 048
     Dates: start: 20211111

REACTIONS (6)
  - Rash pruritic [Unknown]
  - Pain [Unknown]
  - Rash [Recovered/Resolved]
  - Headache [Unknown]
  - Rash erythematous [Unknown]
  - Therapeutic response shortened [Unknown]
